FAERS Safety Report 7476018-1 (Version None)
Quarter: 2011Q2

REPORT INFORMATION
  Report Type: 
  Country: None (occurrence: None)
  Receive Date: 20110512
  Receipt Date: 20110503
  Transmission Date: 20111010
  Serious: Yes (Other)
  Sender: FDA-Public Use
  Company Number: US-JNJFOC-20110306064

PATIENT
  Age: 55 Year
  Sex: Male

DRUGS (9)
  1. STELARA [Suspect]
     Route: 058
  2. STELARA [Suspect]
     Route: 058
  3. STELARA [Suspect]
     Route: 058
  4. DESONIDE [Concomitant]
  5. PAIN MEDICINE (NOS) [Concomitant]
     Indication: HEADACHE
  6. CLOBETASOL PROPIONATE [Concomitant]
  7. ALLERGY MEDICATION [Concomitant]
  8. VECTICAL [Concomitant]
     Dosage: 3 MCG/GM
  9. STELARA [Suspect]
     Indication: PSORIASIS
     Route: 058

REACTIONS (5)
  - HYPERTENSION [None]
  - VISION BLURRED [None]
  - HEADACHE [None]
  - LETHARGY [None]
  - DIZZINESS [None]
